FAERS Safety Report 8388237-0 (Version None)
Quarter: 2012Q2

REPORT INFORMATION
  Report Type: 
  Country: None (occurrence: None)
  Receive Date: 20120525
  Receipt Date: 20120518
  Transmission Date: 20120825
  Serious: Yes (Hospitalization)
  Sender: FDA-Public Use
  Company Number: US-ALLERGAN-1207102US

PATIENT
  Age: 63 Year
  Sex: Female

DRUGS (4)
  1. POTASSIUM CHLORIDE [Concomitant]
     Indication: BLOOD POTASSIUM DECREASED
     Dosage: 10 MEQ, UNK
  2. THYROID TAB [Concomitant]
     Indication: HYPOTHYROIDISM
     Dosage: 75 MG, UNK
  3. BOTOX COSMETIC [Suspect]
     Indication: SKIN WRINKLING
     Dosage: UNK
     Route: 030
     Dates: start: 20120326, end: 20120326
  4. XANAX [Concomitant]
     Indication: SLEEP DISORDER
     Dosage: 1 MG, QHS

REACTIONS (15)
  - WEIGHT DECREASED [None]
  - DYSPNOEA [None]
  - BLOOD POTASSIUM DECREASED [None]
  - HEADACHE [None]
  - EYELID PTOSIS [None]
  - DEPRESSION [None]
  - HYPOTHYROIDISM [None]
  - EYE PAIN [None]
  - OEDEMA PERIPHERAL [None]
  - SWELLING FACE [None]
  - CHEST PAIN [None]
  - APHAGIA [None]
  - EYELID OEDEMA [None]
  - NAUSEA [None]
  - PANIC REACTION [None]
